FAERS Safety Report 18617143 (Version 1)
Quarter: 2020Q4

REPORT INFORMATION
  Report Type: Spontaneous
  Country: US (occurrence: US)
  Receive Date: 20201215
  Receipt Date: 20201215
  Transmission Date: 20210114
  Serious: No
  Sender: FDA-Public Use
  Company Number: US-TEVA-2020-US-1855535

PATIENT
  Sex: Male

DRUGS (4)
  1. AUSTEDO [Suspect]
     Active Substance: DEUTETRABENAZINE
     Indication: TARDIVE DYSKINESIA
     Dosage: 18 MILLIGRAM DAILY;
     Route: 048
     Dates: start: 202003
  2. TIZANIDINE HCL 4 MG TABLET [Concomitant]
  3. MORPHINE SULFATE 15 MG TABLET [Concomitant]
  4. POTASSIUM [Concomitant]
     Active Substance: POTASSIUM

REACTIONS (2)
  - Dyskinesia [Not Recovered/Not Resolved]
  - Muscle spasticity [Not Recovered/Not Resolved]
